FAERS Safety Report 9595283 (Version 1)
Quarter: 2013Q4

REPORT INFORMATION
  Report Type: Spontaneous
  Country: US (occurrence: US)
  Receive Date: 20131004
  Receipt Date: 20131004
  Transmission Date: 20140711
  Serious: No
  Sender: FDA-Public Use
  Company Number: US-PFIZER INC-2013279723

PATIENT
  Age: 74 Year
  Sex: Female
  Weight: 76.64 kg

DRUGS (4)
  1. CENTRUM SILVER WOMEN^S 50+ [Suspect]
     Indication: VITAMIN SUPPLEMENTATION
     Dosage: UNK, 1X/DAY
     Route: 048
     Dates: start: 201309, end: 20130926
  2. LIPITOR [Suspect]
     Indication: BLOOD CHOLESTEROL INCREASED
     Dosage: 20 MG, 1X/DAY
     Route: 048
  3. LIPITOR [Suspect]
     Dosage: 10MG DAILY AND 20MG DAILY ON ALTERNATE DAYS
  4. LEVOTHYROXINE [Concomitant]
     Indication: HYPOTHYROIDISM
     Dosage: 25 UG, 1X/DAY

REACTIONS (2)
  - Liver disorder [Unknown]
  - Frequent bowel movements [Not Recovered/Not Resolved]
